FAERS Safety Report 4618320-4 (Version None)
Quarter: 2005Q1

REPORT INFORMATION
  Report Type: 
  Country: None (occurrence: None)
  Receive Date: 20050323
  Receipt Date: 20050308
  Transmission Date: 20050727
  Serious: Yes (Life-Threatening, Disabling, Other)
  Sender: FDA-Public Use
  Company Number: 2004EU002222

PATIENT
  Age: 56 Year
  Sex: Female
  Weight: 72 kg

DRUGS (4)
  1. PROTOPIC [Suspect]
     Dosage: TOPICAL
     Route: 061
     Dates: start: 20020301
  2. FUCIBET (BETAMETHASONE VALERATE, FUSIDIC ACID) [Concomitant]
  3. XALATAN [Concomitant]
  4. EVENING PRIMROSE OIL [Concomitant]

REACTIONS (1)
  - B-CELL LYMPHOMA [None]
